FAERS Safety Report 8377967-2 (Version None)
Quarter: 2012Q2

REPORT INFORMATION
  Report Type: 
  Country: None (occurrence: None)
  Receive Date: 20120522
  Receipt Date: 20120509
  Transmission Date: 20120825
  Serious: No
  Sender: FDA-Public Use
  Company Number: US-ASTRAZENECA-2012SE30157

PATIENT
  Age: 75 Year
  Sex: Female

DRUGS (1)
  1. PULMICORT FLEXHALER [Suspect]
     Route: 055

REACTIONS (4)
  - RHEUMATOID ARTHRITIS [None]
  - OSTEOARTHRITIS [None]
  - DECUBITUS ULCER [None]
  - HYPERTENSION [None]
